FAERS Safety Report 4655830-8 (Version None)
Quarter: 2005Q2

REPORT INFORMATION
  Report Type: 
  Country: None (occurrence: None)
  Receive Date: 20050509
  Receipt Date: 20050427
  Transmission Date: 20051028
  Serious: Yes (Hospitalization)
  Sender: FDA-Public Use
  Company Number: IT-JNJFOC-20041105669

PATIENT
  Sex: Male
  Weight: 65 kg

DRUGS (12)
  1. BLINDED; ABCIXIMA [Suspect]
     Indication: ACUTE MYOCARDIAL INFARCTION
     Route: 042
  2. RETEPLASE [Suspect]
     Indication: ACUTE MYOCARDIAL INFARCTION
     Route: 042
  3. PLACEBO [Suspect]
     Indication: ACUTE MYOCARDIAL INFARCTION
     Route: 042
  4. WARFARIN [Concomitant]
     Indication: ANTICOAGULANT THERAPY
     Route: 049
  5. AMIODARONE [Concomitant]
     Indication: ARRHYTHMIA
     Route: 049
  6. STATIN [Concomitant]
     Route: 049
  7. LASIX [Concomitant]
     Indication: DIURETIC THERAPY
     Route: 049
  8. COVERSYL [Concomitant]
     Dosage: 1/2 DAILY
     Route: 049
  9. ACETYL SALICYLIC ACID USP BAT [Concomitant]
  10. DIGOXIN [Concomitant]
  11. PROMAZINE HCL [Concomitant]
  12. TICLOPIDINE [Concomitant]

REACTIONS (5)
  - ATRIAL FIBRILLATION [None]
  - CARDIAC ARREST [None]
  - MITRAL VALVE INCOMPETENCE [None]
  - MITRAL VALVE PROLAPSE [None]
  - VENTRICULAR FIBRILLATION [None]
